FAERS Safety Report 6877373-3 (Version None)
Quarter: 2010Q3

REPORT INFORMATION
  Report Type: 
  Country: None (occurrence: None)
  Receive Date: 20100727
  Receipt Date: 20091006
  Transmission Date: 20110219
  Serious: Yes (Death)
  Sender: FDA-Public Use
  Company Number: US-ABBOTT-09P-163-0600991-00

PATIENT
  Age: 65 Year
  Sex: Male
  Weight: 136.2 kg

DRUGS (2)
  1. SYNTHROID [Suspect]
     Indication: HYPOTHYROIDISM
  2. TRICOR [Suspect]
     Indication: HYPERLIPIDAEMIA

REACTIONS (1)
  - DEATH [None]
